FAERS Safety Report 25595671 (Version 3)
Quarter: 2025Q4

REPORT INFORMATION
  Report Type: Report from Study
  Country: US (occurrence: US)
  Receive Date: 20250723
  Receipt Date: 20251005
  Transmission Date: 20260118
  Serious: Yes (Hospitalization, Other)
  Sender: NOVARTIS
  Company Number: US-002147023-NVSC2025US090953

PATIENT
  Sex: Male

DRUGS (2)
  1. KESIMPTA [Suspect]
     Active Substance: OFATUMUMAB
     Indication: Relapsing multiple sclerosis
     Dosage: 20 MG, QW
     Route: 058
     Dates: start: 20250529
  2. KESIMPTA [Suspect]
     Active Substance: OFATUMUMAB
     Dosage: 20 MG, QMO
     Route: 058

REACTIONS (8)
  - Asthenia [Unknown]
  - Feeling abnormal [Unknown]
  - Hypokinesia [Unknown]
  - Primary progressive multiple sclerosis [Not Recovered/Not Resolved]
  - Thrombosis [Unknown]
  - Hand deformity [Unknown]
  - Illness [Unknown]
  - Vomiting [Unknown]
